FAERS Safety Report 9517272 (Version 1)
Quarter: 2013Q1

REPORT INFORMATION
  Report Type: Spontaneous
  Country: US (occurrence: None)
  Receive Date: 20130305
  Receipt Date: 20130305
  Transmission Date: 20140127
  Serious: Yes (Other)
  Sender: FDA-Public Use
  Company Number: 163-21880-12030112

PATIENT
  Age: 57 Year
  Sex: Female

DRUGS (1)
  1. REVLIMID [Suspect]
     Indication: PLASMA CELL MYELOMA
     Dosage: 21 IN 28 D
     Route: 048
     Dates: start: 20120130

REACTIONS (10)
  - Renal impairment [None]
  - Drug dose omission [None]
  - Constipation [None]
  - Rash [None]
  - Pruritus [None]
  - Dry skin [None]
  - Skin exfoliation [None]
  - Dysuria [None]
  - Rash [None]
  - Platelet count decreased [None]
